FAERS Safety Report 18582980 (Version 1)
Quarter: 2020Q4

REPORT INFORMATION
  Report Type: Spontaneous
  Country: US (occurrence: US)
  Receive Date: 20201206
  Receipt Date: 20201206
  Transmission Date: 20210114
  Serious: No
  Sender: FDA-Public Use
  Company Number: US-SA-2020SA345588

PATIENT

DRUGS (5)
  1. IRBESARTAN WINTHROP [Suspect]
     Active Substance: IRBESARTAN
     Dosage: 150 MG, BID
  2. IRBESARTAN WINTHROP [Suspect]
     Active Substance: IRBESARTAN
     Dosage: 300 MG, BID
  3. IRBESARTAN WINTHROP [Suspect]
     Active Substance: IRBESARTAN
     Dosage: 75 MG, BID
  4. IRBESARTAN WINTHROP [Suspect]
     Active Substance: IRBESARTAN
     Indication: HYPERTENSION
     Dosage: 75 MG, BID
     Dates: start: 202002
  5. IRBESARTAN WINTHROP [Suspect]
     Active Substance: IRBESARTAN
     Dosage: 150 MG, BID

REACTIONS (2)
  - Off label use [Unknown]
  - Blood pressure increased [Unknown]

NARRATIVE: CASE EVENT DATE: 20201130
